FAERS Safety Report 11145289 (Version 2)
Quarter: 2015Q3

REPORT INFORMATION
  Report Type: Spontaneous
  Country: AR (occurrence: AR)
  Receive Date: 20150526
  Receipt Date: 20150924
  Transmission Date: 20151125
  Serious: Yes (Other)
  Sender: FDA-Public Use
  Company Number: AR-PFIZER INC-2015171501

PATIENT
  Age: 71 Year
  Sex: Female

DRUGS (1)
  1. XELJANZ [Suspect]
     Active Substance: TOFACITINIB CITRATE
     Indication: RHEUMATOID ARTHRITIS
     Dosage: 5 MG, 2X/DAY
     Dates: start: 20140923

REACTIONS (9)
  - Foot deformity [Recovering/Resolving]
  - Asthenia [Unknown]
  - Dyspepsia [Unknown]
  - Gastrointestinal disorder [Recovering/Resolving]
  - Herpes virus infection [Recovering/Resolving]
  - Abdominal pain [Recovering/Resolving]
  - Limb discomfort [Unknown]
  - Weight decreased [Unknown]
  - Malaise [Recovering/Resolving]

NARRATIVE: CASE EVENT DATE: 201502
